FAERS Safety Report 7622337-5 (Version None)
Quarter: 2011Q3

REPORT INFORMATION
  Report Type: 
  Country: None (occurrence: None)
  Receive Date: 20110720
  Receipt Date: 20110105
  Transmission Date: 20111222
  Serious: Yes (Hospitalization, Other)
  Sender: FDA-Public Use
  Company Number: US-BAYER-200942975NA

PATIENT
  Age: 73 Year
  Sex: Female
  Weight: 66 kg

DRUGS (16)
  1. TRASYLOL [Suspect]
     Indication: MITRAL VALVE REPLACEMENT
     Dosage: 3 CC TEST DOSE
     Route: 042
     Dates: start: 20020628
  2. MILRINONE [Concomitant]
     Dosage: UNK
     Route: 042
     Dates: start: 20020628
  3. ALBUMIN (HUMAN) [Concomitant]
     Dosage: UNK
     Route: 042
     Dates: start: 20020628
  4. PREVACID [Concomitant]
     Dosage: 15 MG, QD
     Route: 048
  5. LASIX [Concomitant]
     Indication: FLUID RETENTION
     Dosage: 60 MG, QAM
     Dates: start: 20020501
  6. MANNITOL [Concomitant]
     Dosage: UNK
     Route: 042
     Dates: start: 20020628
  7. TRASYLOL [Suspect]
     Dosage: 200 CC PUMP PRIME
     Dates: start: 20020628
  8. ACETYLSALICYLIC ACID SRT [Concomitant]
     Dosage: 325 MG, QD
     Route: 048
  9. LIPITOR [Concomitant]
     Dosage: 10 MG, QD
     Route: 048
  10. ALBUTEROL SULFATE AUTOHALER [Concomitant]
     Dosage: AS NEEDED,INHALER
  11. PHENYLEPHRINE HCL [Concomitant]
  12. PROTAMINE SULFATE [Concomitant]
     Dosage: UNK
     Route: 042
     Dates: start: 20020628
  13. CAPTOPRIL [Concomitant]
     Dosage: 6.25 MG, TID
     Route: 048
  14. TRASYLOL [Suspect]
     Dosage: 50CC/HR INFUSION
     Dates: start: 20020628, end: 20020628
  15. LASIX [Concomitant]
     Dosage: 40 MG QHS
     Dates: start: 20020501
  16. QUESTRAN [Concomitant]
     Dosage: 1 PACKET EVERY MORNING
     Route: 048

REACTIONS (8)
  - PAIN [None]
  - RENAL FAILURE CHRONIC [None]
  - UNEVALUABLE EVENT [None]
  - BLOOD CREATININE INCREASED [None]
  - RENAL FAILURE [None]
  - RENAL FAILURE ACUTE [None]
  - ANAEMIA [None]
  - INJURY [None]
